FAERS Safety Report 9147811 (Version 1)
Quarter: 2013Q1

REPORT INFORMATION
  Report Type: Spontaneous
  Country: GB (occurrence: GB)
  Receive Date: 20130307
  Receipt Date: 20130307
  Transmission Date: 20140127
  Serious: Yes (Other)
  Sender: FDA-Public Use
  Company Number: GB-PFIZER INC-2013077506

PATIENT
  Age: 50 Year
  Sex: Female

DRUGS (3)
  1. EPIPEN [Suspect]
     Dosage: 0.5 MG, UNK
     Route: 030
     Dates: start: 20130111
  2. SALBUTAMOL [Concomitant]
     Dosage: UNK
  3. VICTOZA [Concomitant]
     Dosage: UNK

REACTIONS (1)
  - Hypersensitivity [Recovered/Resolved]
